FAERS Safety Report 17008258 (Version 1)
Quarter: 2019Q4

REPORT INFORMATION
  Report Type: Spontaneous
  Country: ES (occurrence: ES)
  Receive Date: 20191108
  Receipt Date: 20191108
  Transmission Date: 20200122
  Serious: Yes (Other)
  Sender: FDA-Public Use
  Company Number: ES-AUROBINDO-AUR-APL-2019-070905

PATIENT
  Age: 10 Year
  Sex: Female

DRUGS (2)
  1. IBUPROFEN 20 MG/ML [Suspect]
     Active Substance: IBUPROFEN
     Indication: PYREXIA
     Dosage: IT DOES NOT APPEAR IN THE ELECTRONIC MEDICAL RECORD OF PRIMARY CARE
     Route: 048
     Dates: start: 201910, end: 20191006
  2. MOTILIUM [Suspect]
     Active Substance: DOMPERIDONE
     Indication: VOMITING
     Dosage: 5 MILLILITER, EVERY 8 HOURS
     Route: 048
     Dates: start: 20191005, end: 20191006

REACTIONS (1)
  - Angioedema [Unknown]

NARRATIVE: CASE EVENT DATE: 20191006
